FAERS Safety Report 5062605-7 (Version None)
Quarter: 2006Q3

REPORT INFORMATION
  Report Type: 
  Country: None (occurrence: None)
  Receive Date: 20060725
  Receipt Date: 20060725
  Transmission Date: 20061208
  Serious: Yes (Other)
  Sender: FDA-Public Use
  Company Number: None

PATIENT
  Age: 62 Year
  Sex: Female
  Weight: 92.9874 kg

DRUGS (7)
  1. OXALIPLATIN [Suspect]
     Indication: COLON CANCER
     Dosage: 85MG/M2 179 MG
  2. COUMADIN [Concomitant]
  3. VICODIN [Concomitant]
  4. LOMOTIL [Concomitant]
  5. AMBIEN [Concomitant]
  6. COMPAZINE [Concomitant]
  7. .... [Concomitant]

REACTIONS (9)
  - BLOOD PRESSURE INCREASED [None]
  - CHILLS [None]
  - CONDITION AGGRAVATED [None]
  - COUGH [None]
  - DYSPNOEA [None]
  - FLUSHING [None]
  - INFUSION RELATED REACTION [None]
  - RASH ERYTHEMATOUS [None]
  - TREMOR [None]
